FAERS Safety Report 10181634 (Version 1)
Quarter: 2014Q2

REPORT INFORMATION
  Report Type: Spontaneous
  Country: US (occurrence: US)
  Receive Date: 20140519
  Receipt Date: 20140519
  Transmission Date: 20141212
  Serious: No
  Sender: FDA-Public Use
  Company Number: US-009507513-1404USA003837

PATIENT
  Sex: Female

DRUGS (1)
  1. DR. SCHOLL^S INGROWN TOENAIL PAIN RELIEVER [Suspect]
     Indication: PAIN IN EXTREMITY
     Dosage: PATIENT USED TWICE DAILY AS RECOMMENDED
     Route: 061

REACTIONS (1)
  - Drug ineffective [Unknown]
